FAERS Safety Report 11686981 (Version 1)
Quarter: 2015Q4

REPORT INFORMATION
  Report Type: Spontaneous
  Country: US (occurrence: US)
  Receive Date: 20151030
  Receipt Date: 20151030
  Transmission Date: 20160314
  Serious: No
  Sender: FDA-Public Use
  Company Number: US-BAUSCH-BL-2015-016001

PATIENT
  Age: 71 Year
  Sex: Male
  Weight: 83.99 kg

DRUGS (4)
  1. REFRESH TEARS [Concomitant]
     Active Substance: CARBOXYMETHYLCELLULOSE SODIUM
     Indication: DRY EYE
     Dosage: TWO DROPS IN EACH EYE AS NEEDED.
     Route: 047
  2. LOSARTAN. [Concomitant]
     Active Substance: LOSARTAN
     Indication: HYPERTENSION
     Route: 048
  3. ZANTAC [Concomitant]
     Active Substance: RANITIDINE HYDROCHLORIDE
     Indication: GASTROOESOPHAGEAL REFLUX DISEASE
     Route: 048
  4. BEPREVE [Suspect]
     Active Substance: BEPOTASTINE BESILATE
     Indication: HYPERSENSITIVITY
     Dosage: INSTILLED ONE DROP IN EACH EYE IN THE MORNING
     Route: 047
     Dates: start: 20150618

REACTIONS (4)
  - Condition aggravated [Recovering/Resolving]
  - Eye irritation [Recovering/Resolving]
  - Dysgeusia [Not Recovered/Not Resolved]
  - Eye pruritus [Recovering/Resolving]

NARRATIVE: CASE EVENT DATE: 20150618
